FAERS Safety Report 19930571 (Version 1)
Quarter: 2021Q4

REPORT INFORMATION
  Report Type: Report from Study
  Country: PT (occurrence: PT)
  Receive Date: 20211008
  Receipt Date: 20211008
  Transmission Date: 20220304
  Serious: Yes (Other)
  Sender: FDA-Public Use
  Company Number: PT-EMA-DD-20210922-JOON_U1-130331

PATIENT
  Age: 41 Year
  Sex: Female

DRUGS (7)
  1. DESMOPRESSIN [Suspect]
     Active Substance: DESMOPRESSIN
     Indication: Product used for unknown indication
     Dosage: UNK, THERAPY START AND END DATE: ASKU
     Route: 065
  2. TENOFOVIR [Suspect]
     Active Substance: TENOFOVIR
     Indication: HIV infection
     Dosage: 245 MILLIGRAM DAILY; THERAPY START AND END DATE: ASKU
     Route: 048
  3. TENOFOVIR [Suspect]
     Active Substance: TENOFOVIR
     Indication: Hepatitis B
  4. EMTRICITABINE [Suspect]
     Active Substance: EMTRICITABINE
     Indication: Hepatitis B
     Dosage: 200 MILLIGRAM DAILY; THERAPY START AND END DATE: ASKU
     Route: 048
  5. EMTRICITABINE [Suspect]
     Active Substance: EMTRICITABINE
     Indication: HIV infection
  6. TIVICAY [Suspect]
     Active Substance: DOLUTEGRAVIR SODIUM
     Indication: HIV infection
     Dosage: 50 MILLIGRAM DAILY; THERAPY START AND END DATE: ASKU
     Route: 048
  7. TIVICAY [Suspect]
     Active Substance: DOLUTEGRAVIR SODIUM
     Indication: Hepatitis B

REACTIONS (3)
  - Oligohydramnios [Unknown]
  - Abortion induced [Unknown]
  - Maternal exposure during pregnancy [Recovered/Resolved]
